FAERS Safety Report 10750598 (Version 2)
Quarter: 2015Q1

REPORT INFORMATION
  Report Type: Spontaneous
  Country: BR (occurrence: BR)
  Receive Date: 20150130
  Receipt Date: 20150130
  Transmission Date: 20150721
  Serious: Yes (Hospitalization)
  Sender: FDA-Public Use
  Company Number: BR-MERCK-1501BRA011444

PATIENT
  Age: 4 Year
  Sex: Male
  Weight: 21 kg

DRUGS (3)
  1. NASONEX [Suspect]
     Active Substance: MOMETASONE FUROATE
     Indication: BRONCHITIS
     Dosage: ONE PUFF ON EACH NOSTRIL BID
     Route: 045
     Dates: start: 201305, end: 201311
  2. NASONEX [Suspect]
     Active Substance: MOMETASONE FUROATE
     Dosage: UNK
     Route: 045
  3. NASONEX [Suspect]
     Active Substance: MOMETASONE FUROATE
     Dosage: ONE PUFF ON EACH NOSTRIL QD
     Route: 045
     Dates: start: 201311, end: 201409

REACTIONS (4)
  - Purpura [Unknown]
  - Cough [Recovered/Resolved]
  - Nasal congestion [Recovered/Resolved]
  - Contusion [Recovered/Resolved]

NARRATIVE: CASE EVENT DATE: 201412
